FAERS Safety Report 23331457 (Version 1)
Quarter: 2023Q4

REPORT INFORMATION
  Report Type: Report from Study
  Country: US (occurrence: None)
  Receive Date: 20231222
  Receipt Date: 20231222
  Transmission Date: 20240109
  Serious: Yes (Death)
  Sender: FDA-Public Use
  Company Number: 2023A289007

PATIENT
  Sex: Male
  Weight: 78.9 kg

DRUGS (6)
  1. KOSELUGO [Suspect]
     Active Substance: SELUMETINIB
     Indication: Neoplasm malignant
     Route: 048
     Dates: start: 20230701
  2. ONDANSETRON [Concomitant]
     Active Substance: ONDANSETRON
  3. KEFLEX [Concomitant]
     Active Substance: CEPHALEXIN
  4. LASIX [Concomitant]
     Active Substance: FUROSEMIDE
  5. PHAZYME MAX [Concomitant]
  6. IMODIUM A-D [Concomitant]
     Active Substance: LOPERAMIDE HYDROCHLORIDE

REACTIONS (1)
  - Death [Fatal]
